FAERS Safety Report 14345286 (Version 1)
Quarter: 2017Q4

REPORT INFORMATION
  Report Type: Spontaneous
  Country: US (occurrence: US)
  Receive Date: 20171230
  Receipt Date: 20171230
  Transmission Date: 20180321
  Serious: No
  Sender: FDA-Public Use
  Company Number: None

PATIENT
  Age: 52 Year
  Sex: Female

DRUGS (1)
  1. BOTOX [Suspect]
     Active Substance: ONABOTULINUMTOXINA
     Indication: MIGRAINE
     Dosage: 100 UNITS EVERY 12 WEEKS INTRAMUSCULARLY
     Route: 030
     Dates: start: 20160606

REACTIONS (1)
  - Alopecia [None]

NARRATIVE: CASE EVENT DATE: 20151220
